FAERS Safety Report 14154709 (Version 1)
Quarter: 2017Q4

REPORT INFORMATION
  Report Type: Spontaneous
  Country: AU (occurrence: AU)
  Receive Date: 20171102
  Receipt Date: 20171102
  Transmission Date: 20180321
  Serious: Yes (Other)
  Sender: FDA-Public Use
  Company Number: AU-MALLINCKRODT-T201704280

PATIENT
  Age: 43 Year
  Sex: Female

DRUGS (1)
  1. INOMAX [Suspect]
     Active Substance: NITRIC OXIDE
     Indication: PRODUCT USED FOR UNKNOWN INDICATION
     Dosage: UNK
     Route: 065

REACTIONS (7)
  - Off label use [Unknown]
  - Dyspnoea [Unknown]
  - Throat tightness [Unknown]
  - Apnoea [Unknown]
  - Unresponsive to stimuli [Unknown]
  - Erythema [Unknown]
  - Dysarthria [Unknown]
